FAERS Safety Report 15841039 (Version 1)
Quarter: 2019Q1

REPORT INFORMATION
  Report Type: Spontaneous
  Country: US (occurrence: US)
  Receive Date: 20190118
  Receipt Date: 20190118
  Transmission Date: 20190417
  Serious: No
  Sender: FDA-Public Use
  Company Number: US-BEH-2019098548

PATIENT
  Sex: Female

DRUGS (3)
  1. HIZENTRA [Suspect]
     Active Substance: HUMAN IMMUNOGLOBULIN G
     Indication: CHRONIC INFLAMMATORY DEMYELINATING POLYRADICULONEUROPATHY
     Dosage: 10 G, DAILY X2 DAYS/WK
     Route: 058
     Dates: start: 20170725
  2. HIZENTRA [Suspect]
     Active Substance: HUMAN IMMUNOGLOBULIN G
     Dosage: 2 G, DAILY X2 DAYS/WK
     Route: 058
     Dates: start: 20170725
  3. HIZENTRA [Suspect]
     Active Substance: HUMAN IMMUNOGLOBULIN G
     Dosage: 4 G, DAILY X2 DAYS/WK
     Route: 058
     Dates: start: 20170725

REACTIONS (2)
  - Anxiety [Recovered/Resolved]
  - Blood pressure increased [Recovered/Resolved]
